FAERS Safety Report 10056507 (Version 1)
Quarter: 2014Q2

REPORT INFORMATION
  Report Type: Spontaneous
  Country: FR (occurrence: FR)
  Receive Date: 20140403
  Receipt Date: 20140403
  Transmission Date: 20141212
  Serious: Yes (Hospitalization)
  Sender: FDA-Public Use
  Company Number: FR-SA-2014SA036058

PATIENT
  Age: 82 Year
  Sex: Male

DRUGS (11)
  1. FUROSEMIDE [Suspect]
     Indication: PRODUCT USED FOR UNKNOWN INDICATION
     Dosage: STRENGTH: 40 MG
     Route: 065
     Dates: end: 20140225
  2. INIPOMP [Suspect]
     Indication: PRODUCT USED FOR UNKNOWN INDICATION
     Route: 048
     Dates: end: 20140225
  3. SERETIDE [Concomitant]
  4. PRAVASTATINE [Concomitant]
  5. PLAVIX [Concomitant]
  6. IPERTEN [Concomitant]
  7. DEPAKINE CHRONO [Concomitant]
  8. BRONCHODUAL [Concomitant]
  9. ZYLORIC [Concomitant]
  10. ALPRAZOLAM [Concomitant]
  11. CLAMOXYL [Concomitant]
     Dates: start: 20131126, end: 20131127

REACTIONS (5)
  - Toxic skin eruption [Recovering/Resolving]
  - Erysipelas [Recovering/Resolving]
  - Photosensitivity reaction [Recovering/Resolving]
  - Eczema [Recovering/Resolving]
  - Drug eruption [Recovering/Resolving]
